FAERS Safety Report 25983843 (Version 1)
Quarter: 2025Q4

REPORT INFORMATION
  Report Type: Spontaneous
  Country: US (occurrence: None)
  Receive Date: 20251030
  Receipt Date: 20251030
  Transmission Date: 20260117
  Serious: Yes (Hospitalization)
  Sender: FDA-CTU
  Company Number: None

PATIENT
  Sex: Male

DRUGS (2)
  1. TREMFYA [Suspect]
     Active Substance: GUSELKUMAB
     Indication: Crohn^s disease
     Dosage: INFUSE 200 MG INTRAVENOUSLY AT WEEKS 0, 4 AND 8
     Route: 042
     Dates: start: 20250625
  2. SIMLANDI 1-PEN KIT [Concomitant]

REACTIONS (2)
  - Product substitution issue [None]
  - Drug ineffective [None]
